FAERS Safety Report 5523648-X (Version None)
Quarter: 2007Q4

REPORT INFORMATION
  Report Type: 
  Country: None (occurrence: None)
  Receive Date: 20071121
  Receipt Date: 20071113
  Transmission Date: 20080405
  Serious: Yes (Hospitalization, Other)
  Sender: FDA-Public Use
  Company Number: CA-ELI_LILLY_AND_COMPANY-CA200709001021

PATIENT
  Sex: Female

DRUGS (11)
  1. FORTEO [Suspect]
     Indication: OSTEOPOROSIS
     Dosage: 20 U, DAILY (1/D)
     Route: 058
     Dates: start: 20060629, end: 20070903
  2. FORTEO [Suspect]
     Dosage: 20 UG, DAILY (1/D)
     Route: 058
     Dates: start: 20070909
  3. RABEPRAZOLE SODIUM [Concomitant]
     Dosage: 20 MG, DAILY (1/D)
  4. PAXIL [Concomitant]
     Dosage: 10 MG, DAILY (1/D)
  5. LIPITOR [Concomitant]
     Dosage: 10 MG, DAILY (1/D)
  6. DEMEROL [Concomitant]
     Dosage: 50 MG, AS NEEDED
  7. ISOPTIN ICHS - SLOW RELEASE [Concomitant]
     Dosage: 240 MG, DAILY (1/D)
  8. HYDROCHLOROTHIAZIDE [Concomitant]
     Dosage: 25 MG, DAILY (1/D)
  9. ASPIRIN [Concomitant]
     Dosage: 81 MG, DAILY (1/D)
  10. DRISDOL [Concomitant]
     Dosage: UNK, DAILY (1/D)
     Route: 048
  11. CALCIUM [Concomitant]
     Dosage: 2000 MG, DAILY (1/D)

REACTIONS (3)
  - RIB FRACTURE [None]
  - ROAD TRAFFIC ACCIDENT [None]
  - SYNCOPE [None]
